FAERS Safety Report 13952560 (Version 1)
Quarter: 2017Q3

REPORT INFORMATION
  Report Type: Spontaneous
  Country: US (occurrence: US)
  Receive Date: 20170911
  Receipt Date: 20170911
  Transmission Date: 20171128
  Serious: Yes (Other)
  Sender: FDA-Public Use
  Company Number: US-TEVA-743096USA

PATIENT
  Sex: Female

DRUGS (1)
  1. FENTANYL. [Suspect]
     Active Substance: FENTANYL
     Route: 062
     Dates: start: 20170219, end: 20170220

REACTIONS (6)
  - Product leakage [Unknown]
  - Product physical issue [Unknown]
  - Malaise [Recovered/Resolved]
  - Throat tightness [Recovered/Resolved]
  - Tremor [Recovered/Resolved]
  - Speech disorder [Unknown]

NARRATIVE: CASE EVENT DATE: 20170219
